FAERS Safety Report 10283665 (Version 1)
Quarter: 2014Q3

REPORT INFORMATION
  Report Type: Spontaneous
  Country: US (occurrence: None)
  Receive Date: 20140702
  Receipt Date: 20140702
  Transmission Date: 20150326
  Serious: Yes (Hospitalization)
  Sender: FDA-Public Use
  Company Number: None

PATIENT
  Age: 4 Year
  Sex: Male
  Weight: 16.78 kg

DRUGS (1)
  1. QUILLIVANT XR [Suspect]
     Active Substance: METHYLPHENIDATE HYDROCHLORIDE
     Indication: ATTENTION DEFICIT/HYPERACTIVITY DISORDER
     Dosage: 1 ML QD ORAL
     Route: 048
     Dates: start: 20140625, end: 20140701

REACTIONS (7)
  - Feeling hot [None]
  - Dystonia [None]
  - Dyskinesia [None]
  - Accidental overdose [None]
  - Sleep disorder [None]
  - Tongue disorder [None]
  - Speech disorder [None]

NARRATIVE: CASE EVENT DATE: 20140625
